FAERS Safety Report 16160597 (Version 2)
Quarter: 2019Q2

REPORT INFORMATION
  Report Type: Report from Study
  Country: None (occurrence: US)
  Receive Date: 20190405
  Receipt Date: 20190628
  Transmission Date: 20190711
  Serious: Yes (Other)
  Sender: FDA-Public Use
  Company Number: US-ABBVIE-19S-163-2731152-00

PATIENT
  Sex: Female

DRUGS (1)
  1. DUOPA [Suspect]
     Active Substance: CARBIDOPA\LEVODOPA
     Indication: PARKINSON^S DISEASE
     Route: 050
     Dates: start: 20170816

REACTIONS (5)
  - General physical health deterioration [Not Recovered/Not Resolved]
  - Presyncope [Not Recovered/Not Resolved]
  - Dysphagia [Unknown]
  - Weight decreased [Not Recovered/Not Resolved]
  - Parkinson^s disease [Unknown]
